FAERS Safety Report 10979308 (Version 1)
Quarter: 2015Q2

REPORT INFORMATION
  Report Type: Spontaneous
  Country: US (occurrence: US)
  Receive Date: 20150402
  Receipt Date: 20150402
  Transmission Date: 20150821
  Serious: No
  Sender: FDA-Public Use
  Company Number: US-009507513-1503USA012415

PATIENT
  Sex: Female

DRUGS (3)
  1. CLARITIN [Suspect]
     Active Substance: LORATADINE
     Indication: SKIN DISORDER
     Dosage: 20 MG, QD
     Route: 048
  2. CLARITIN [Suspect]
     Active Substance: LORATADINE
     Indication: URTICARIA
  3. CLARITIN [Suspect]
     Active Substance: LORATADINE
     Indication: PEMPHIGOID

REACTIONS (4)
  - Drug prescribing error [Unknown]
  - Therapeutic response unexpected [Unknown]
  - Prescribed overdose [Unknown]
  - Off label use [Unknown]
